FAERS Safety Report 10719644 (Version 3)
Quarter: 2015Q1

REPORT INFORMATION
  Report Type: Spontaneous
  Country: US (occurrence: US)
  Receive Date: 20150119
  Receipt Date: 20150210
  Transmission Date: 20150721
  Serious: Yes (Hospitalization, Other)
  Sender: FDA-Public Use
  Company Number: US-UNITED THERAPEUTICS-UNT-2014-010839

PATIENT
  Age: 56 Year
  Sex: Female
  Weight: 92.97 kg

DRUGS (7)
  1. ADEMPAS [Concomitant]
     Active Substance: RIOCIGUAT
     Indication: PRODUCT USED FOR UNKNOWN INDICATION
  2. ALDACTONE [Concomitant]
     Active Substance: SPIRONOLACTONE
     Indication: PRODUCT USED FOR UNKNOWN INDICATION
  3. TORSEMIDE. [Concomitant]
     Active Substance: TORSEMIDE
     Indication: PRODUCT USED FOR UNKNOWN INDICATION
  4. REMODULIN [Suspect]
     Active Substance: TREPROSTINIL
     Dosage: 0.101 ?G/KG/MIN, CONTINUING
     Route: 041
     Dates: start: 20110420
  5. REMODULIN [Suspect]
     Active Substance: TREPROSTINIL
     Indication: PULMONARY ARTERIAL HYPERTENSION
     Dosage: 0.101 ?G/KG, CONTINUING
     Route: 041
     Dates: start: 20110420
  6. ATENOLOL. [Concomitant]
     Active Substance: ATENOLOL
     Indication: PRODUCT USED FOR UNKNOWN INDICATION
  7. PRILOSEC [Concomitant]
     Active Substance: OMEPRAZOLE MAGNESIUM
     Indication: PRODUCT USED FOR UNKNOWN INDICATION

REACTIONS (7)
  - Upper gastrointestinal haemorrhage [Unknown]
  - Right ventricular failure [Not Recovered/Not Resolved]
  - Haemoglobin decreased [Unknown]
  - Fluid retention [Not Recovered/Not Resolved]
  - Eye oedema [Not Recovered/Not Resolved]
  - Renal pain [Unknown]
  - Adverse event [Unknown]

NARRATIVE: CASE EVENT DATE: 201411
